FAERS Safety Report 15617600 (Version 6)
Quarter: 2019Q1

REPORT INFORMATION
  Report Type: Report from Study
  Country: DE (occurrence: DE)
  Receive Date: 20181114
  Receipt Date: 20190121
  Transmission Date: 20190417
  Serious: Yes (Life-Threatening, Other)
  Sender: FDA-Public Use
  Company Number: DE-PFIZER INC-2018464618

PATIENT
  Age: 74 Year
  Sex: Male

DRUGS (3)
  1. DICLOFENAC [Suspect]
     Active Substance: DICLOFENAC
     Dosage: UNK
     Route: 065
  2. IBUPROFEN. [Suspect]
     Active Substance: IBUPROFEN
     Dosage: UNK
     Route: 065
  3. ACETYLSALICYLIC ACID [Suspect]
     Active Substance: ASPIRIN
     Dosage: UNK
     Route: 065

REACTIONS (1)
  - Cardiac failure [Unknown]
